FAERS Safety Report 4697856-4 (Version None)
Quarter: 2005Q2

REPORT INFORMATION
  Report Type: 
  Country: None (occurrence: None)
  Receive Date: 20050621
  Receipt Date: 20050602
  Transmission Date: 20051028
  Serious: Yes (Hospitalization, Other)
  Sender: FDA-Public Use
  Company Number: ATO-04-0976

PATIENT
  Age: 55 Year
  Sex: Male

DRUGS (2)
  1. TRISENOX [Suspect]
     Indication: ACUTE PROMYELOCYTIC LEUKAEMIA
     Dosage: 12.3 MG (12.3 MG DAILY) INTRAVENOUS
     Route: 042
     Dates: start: 20041214, end: 20041221
  2. CYTARABINE [Suspect]
     Indication: ACUTE PROMYELOCYTIC LEUKAEMIA
     Dosage: 200 MG/M2 (200 MG/M2/DAILY) IVI
     Route: 042
     Dates: start: 20041214, end: 20041231

REACTIONS (4)
  - BLOOD LACTATE DEHYDROGENASE INCREASED [None]
  - BODY TEMPERATURE INCREASED [None]
  - CONSTIPATION [None]
  - PLEURAL EFFUSION [None]
